FAERS Safety Report 4864252-6 (Version None)
Quarter: 2005Q4

REPORT INFORMATION
  Report Type: 
  Country: None (occurrence: None)
  Receive Date: 20051222
  Receipt Date: 20051219
  Transmission Date: 20060501
  Serious: Yes (Other)
  Sender: FDA-Public Use
  Company Number: 2005AP06479

PATIENT
  Age: 80 Year
  Sex: Male

DRUGS (3)
  1. ZOLADEX [Suspect]
     Indication: PROSTATE CANCER
     Route: 058
  2. WARFARIN [Concomitant]
  3. ARCOXIA [Concomitant]
     Indication: BACK PAIN

REACTIONS (1)
  - GASTROINTESTINAL HAEMORRHAGE [None]
